FAERS Safety Report 4705553-1 (Version None)
Quarter: 2005Q2

REPORT INFORMATION
  Report Type: 
  Country: None (occurrence: None)
  Receive Date: 20050629
  Receipt Date: 20050203
  Transmission Date: 20051028
  Serious: Yes (Hospitalization)
  Sender: FDA-Public Use
  Company Number: 200111930EU

PATIENT
  Age: 67 Year
  Sex: Female

DRUGS (3)
  1. ADRIAMYCIN PFS [Suspect]
     Indication: BREAST CANCER
     Dosage: 81 MG Q3W IV
     Route: 042
     Dates: start: 20010301, end: 20010301
  2. FLUOROURACIL [Suspect]
     Indication: BREAST CANCER
     Dosage: 810 MG Q3W IV
     Route: 042
     Dates: start: 20010301, end: 20010301
  3. CYCLOPHOSPHAMIDE [Suspect]
     Indication: BREAST CANCER
     Dosage: 810 MG Q3W IV
     Route: 042
     Dates: start: 20010301, end: 20010301

REACTIONS (5)
  - COUGH [None]
  - LUNG INFILTRATION [None]
  - NEUTROPHIL COUNT DECREASED [None]
  - STOMATITIS [None]
  - WHITE BLOOD CELL COUNT INCREASED [None]
